FAERS Safety Report 26069916 (Version 1)
Quarter: 2025Q4

REPORT INFORMATION
  Report Type: Spontaneous
  Country: US (occurrence: US)
  Receive Date: 20251120
  Receipt Date: 20251120
  Transmission Date: 20260119
  Serious: Yes (Other)
  Sender: CATALYST PHARMA
  Company Number: US-CATALYST PHARMACEUTICALS-US-CATA-25-01490

PATIENT
  Age: 11 Year
  Sex: Male
  Weight: 36.095 kg

DRUGS (8)
  1. AGAMREE [Suspect]
     Active Substance: VAMOROLONE
     Indication: Duchenne muscular dystrophy
     Dosage: 4.7 ML DAILY
     Route: 048
     Dates: start: 20250521, end: 2025
  2. AGAMREE [Suspect]
     Active Substance: VAMOROLONE
     Dosage: 5.4 ML ONCE DAILY
     Route: 048
     Dates: start: 20250918
  3. EPLERENONE [Concomitant]
     Active Substance: EPLERENONE
     Indication: Cardiovascular event prophylaxis
     Dosage: 25 MG DAILY
     Route: 065
  4. VITAMIN D3/VITAMIN K2 SUPPLEMENT [Concomitant]
     Indication: Bone disorder
     Dosage: 125 MCG/100MG EVERY OTHER DAY
     Route: 065
  5. VITAMIN D3/VITAMIN K2 SUPPLEMENT [Concomitant]
     Indication: Prophylaxis
  6. LISINOPRIL [Concomitant]
     Active Substance: LISINOPRIL
     Indication: Cardiovascular event prophylaxis
     Dosage: 15 MG DAILY
     Route: 065
  7. VITAMINS [Concomitant]
     Active Substance: VITAMINS
     Indication: Hypovitaminosis
     Dosage: ONCE A DAY
     Route: 065
  8. OMEGA 3 [Concomitant]
     Active Substance: CAPSAICIN
     Indication: Cardiovascular event prophylaxis
     Dosage: 500 MG DAILY
     Route: 065

REACTIONS (1)
  - Upper limb fracture [Recovering/Resolving]

NARRATIVE: CASE EVENT DATE: 20250901
